FAERS Safety Report 8978022 (Version 1)
Quarter: 2012Q4

REPORT INFORMATION
  Report Type: 
  Country: DZ (occurrence: DZ)
  Receive Date: 20121220
  Receipt Date: 20121220
  Transmission Date: 20130627
  Serious: Yes (Other)
  Sender: FDA-Public Use
  Company Number: DZ-ROCHE-1168781

PATIENT
  Sex: Male

DRUGS (6)
  1. PEGASYS [Suspect]
     Indication: HEPATITIS C
     Route: 058
     Dates: start: 20111005
  2. PEGASYS [Suspect]
     Route: 058
     Dates: start: 201206
  3. COPEGUS [Suspect]
     Indication: HEPATITIS C
     Route: 048
     Dates: start: 20111005
  4. COPEGUS [Suspect]
     Dosage: dosage decreased, 2 tab in morning and 3 in evening
     Route: 048
  5. COPEGUS [Suspect]
     Dosage: dosage decreased
     Route: 048
     Dates: start: 201206
  6. ZYLORIC [Concomitant]
     Route: 065

REACTIONS (4)
  - Blood iron increased [Not Recovered/Not Resolved]
  - Anaemia [Not Recovered/Not Resolved]
  - Blood uric acid increased [Recovered/Resolved]
  - Cystitis [Recovered/Resolved]
